FAERS Safety Report 14896713 (Version 2)
Quarter: 2018Q2

REPORT INFORMATION
  Report Type: Spontaneous
  Country: US (occurrence: US)
  Receive Date: 20180515
  Receipt Date: 20180608
  Transmission Date: 20180711
  Serious: No
  Sender: FDA-Public Use
  Company Number: US-DIMETHAID UK LIMITED-DIM-001644-2018

PATIENT
  Sex: Female

DRUGS (3)
  1. PENNSAID [Suspect]
     Active Substance: DICLOFENAC SODIUM
     Indication: RHEUMATOID ARTHRITIS
     Dosage: 2 PUMPS TWICE A DAY
     Route: 065
     Dates: start: 20180101
  2. PENNSAID [Suspect]
     Active Substance: DICLOFENAC SODIUM
     Indication: OSTEOARTHRITIS
  3. PENNSAID [Suspect]
     Active Substance: DICLOFENAC SODIUM
     Indication: ARTHRALGIA

REACTIONS (4)
  - Inability to afford medication [Unknown]
  - Drug dose omission [Unknown]
  - Arthralgia [Recovering/Resolving]
  - Insomnia [Unknown]
